FAERS Safety Report 7345743-5 (Version None)
Quarter: 2011Q1

REPORT INFORMATION
  Report Type: 
  Country: None (occurrence: None)
  Receive Date: 20110308
  Receipt Date: 20110308
  Transmission Date: 20110831
  Serious: Yes (Other)
  Sender: FDA-Public Use
  Company Number: None

PATIENT
  Sex: Male
  Weight: 117.9352 kg

DRUGS (1)
  1. OMEPRAZOLE [Suspect]
     Indication: GASTROOESOPHAGEAL REFLUX DISEASE
     Dosage: 40MG NIGHTLY PO
     Route: 048
     Dates: start: 20110101, end: 20110222

REACTIONS (6)
  - IRRITABLE BOWEL SYNDROME [None]
  - DIARRHOEA [None]
  - ASPIRATION [None]
  - MIDDLE INSOMNIA [None]
  - ABDOMINAL PAIN UPPER [None]
  - NAUSEA [None]
